FAERS Safety Report 15563649 (Version 1)
Quarter: 2018Q4

REPORT INFORMATION
  Report Type: Spontaneous
  Country: US (occurrence: US)
  Receive Date: 20181029
  Receipt Date: 20181029
  Transmission Date: 20190205
  Serious: No
  Sender: FDA-Public Use
  Company Number: US-SA-2018SA294875

PATIENT
  Sex: Male

DRUGS (1)
  1. ICY HOT WITH LIDOCAINE PAIN RELIEVING [Suspect]
     Active Substance: LIDOCAINE\MENTHOL
     Dosage: UNK UNK, UNK

REACTIONS (3)
  - Paraesthesia [Unknown]
  - Product use in unapproved indication [Unknown]
  - Burning sensation [Unknown]
